FAERS Safety Report 13783509 (Version 5)
Quarter: 2017Q4

REPORT INFORMATION
  Report Type: Report from Study
  Country: IT (occurrence: IT)
  Receive Date: 20170724
  Receipt Date: 20171214
  Transmission Date: 20180320
  Serious: Yes (Hospitalization)
  Sender: FDA-Public Use
  Company Number: IT-BAYER-2017-061782

PATIENT
  Age: 71 Year
  Sex: Female
  Weight: 79 kg

DRUGS (18)
  1. STIVARGA [Suspect]
     Active Substance: REGORAFENIB
     Indication: COLORECTAL CANCER METASTATIC
     Dosage: 160 MG, QD
     Dates: start: 20160523, end: 20160614
  2. STIVARGA [Suspect]
     Active Substance: REGORAFENIB
     Indication: COLORECTAL CANCER METASTATIC
     Dosage: 80 MG, QD
     Dates: start: 201607, end: 20160714
  3. AUGMENTIN [Concomitant]
     Active Substance: AMOXICILLIN\CLAVULANATE POTASSIUM
     Dosage: 2 G, QD
     Dates: start: 20170616, end: 20170624
  4. LEVOLAC [Concomitant]
     Active Substance: LACTULOSE
     Dosage: 1 MEASURE SPOON
     Dates: start: 20160616, end: 20160619
  5. STIVARGA [Suspect]
     Active Substance: REGORAFENIB
     Indication: COLORECTAL CANCER METASTATIC
     Dosage: 40 MG, DAILY
     Dates: start: 2016, end: 20160818
  6. LEVOPRAID (SULPIRIDE) [Concomitant]
     Active Substance: SULPIRIDE
     Dosage: 1 DF, UNK
     Dates: start: 1945
  7. TAVOR [LORAZEPAM] [Concomitant]
     Active Substance: LORAZEPAM
     Dosage: 1 MG, QD
     Dates: start: 1945
  8. COAPROVEL [Concomitant]
     Active Substance: HYDROCHLOROTHIAZIDE\IRBESARTAN
     Indication: HYPERTENSION
     Route: 048
  9. PANITUMUMAB [Concomitant]
     Active Substance: PANITUMUMAB
     Dosage: UNK
     Dates: start: 201611
  10. SOLDESAM [Concomitant]
     Active Substance: DEXAMETHASONE
     Dosage: 32 DROPS DAILY
     Dates: start: 20130703, end: 20160908
  11. STIVARGA [Suspect]
     Active Substance: REGORAFENIB
     Indication: COLORECTAL CANCER METASTATIC
     Dosage: 40 MG, QD
     Dates: start: 20160711, end: 201607
  12. OPTRUMA [Concomitant]
     Active Substance: RALOXIFENE HYDROCHLORIDE
     Route: 048
  13. STIVARGA [Suspect]
     Active Substance: REGORAFENIB
     Indication: COLORECTAL CANCER METASTATIC
     Dosage: 80 MG, QD
     Dates: start: 20160819, end: 20160826
  14. OPTRUMA [Concomitant]
     Active Substance: RALOXIFENE HYDROCHLORIDE
     Route: 048
  15. CARVASIN [Concomitant]
     Active Substance: ISOSORBIDE DINITRATE
     Dosage: 1 DF, UNK
     Dates: start: 20160615
  16. FLUTICASONE. [Concomitant]
     Active Substance: FLUTICASONE
     Dosage: 1 DF, QD
     Dates: start: 1945
  17. PANTORC [Concomitant]
     Active Substance: PANTOPRAZOLE SODIUM
     Route: 048
  18. MOMENT 200 [Concomitant]
     Active Substance: IBUPROFEN
     Dosage: 1 DF, QD
     Dates: start: 1945

REACTIONS (6)
  - Nausea [Recovered/Resolved]
  - Confusional state [Recovered/Resolved]
  - Confusional state [Recovered/Resolved]
  - Vomiting [Recovered/Resolved]
  - Hyponatraemia [Recovered/Resolved]
  - Asthenia [Recovered/Resolved]

NARRATIVE: CASE EVENT DATE: 20160826
